FAERS Safety Report 6903067-1 (Version None)
Quarter: 2010Q3

REPORT INFORMATION
  Report Type: 
  Country: None (occurrence: None)
  Receive Date: 20100803
  Receipt Date: 20080904
  Transmission Date: 20110219
  Serious: No
  Sender: FDA-Public Use
  Company Number: US-PFIZER INC-2008064987

PATIENT
  Sex: Female

DRUGS (1)
  1. LYRICA [Suspect]
     Indication: FIBROMYALGIA
     Dates: end: 20080101

REACTIONS (8)
  - AGITATION [None]
  - CHEST PAIN [None]
  - EAR DISCOMFORT [None]
  - EMOTIONAL DISORDER [None]
  - HEADACHE [None]
  - MYALGIA [None]
  - POOR QUALITY SLEEP [None]
  - SOMNOLENCE [None]
